FAERS Safety Report 23980401 (Version 2)
Quarter: 2024Q4

REPORT INFORMATION
  Report Type: Report from Study
  Country: US (occurrence: US)
  Receive Date: 20240617
  Receipt Date: 20241029
  Transmission Date: 20250115
  Serious: Yes (Other)
  Sender: ABBVIE
  Company Number: US-ABBVIE-5800690

PATIENT
  Sex: Female

DRUGS (1)
  1. HUMIRA [Suspect]
     Active Substance: ADALIMUMAB
     Indication: Psoriatic arthropathy
     Route: 058
     Dates: start: 20240301

REACTIONS (8)
  - Hepatic cirrhosis [Unknown]
  - Gallbladder operation [Unknown]
  - Diabetes mellitus [Recovering/Resolving]
  - Hepatic steatosis [Unknown]
  - Hepatic fibrosis [Recovering/Resolving]
  - Sciatica [Recovering/Resolving]
  - Osteoarthritis [Recovering/Resolving]
  - Rheumatoid arthritis [Recovering/Resolving]

NARRATIVE: CASE EVENT DATE: 20240101
